FAERS Safety Report 4381848-9 (Version None)
Quarter: 2004Q2

REPORT INFORMATION
  Report Type: 
  Country: None (occurrence: None)
  Receive Date: 20040614
  Receipt Date: 20040525
  Transmission Date: 20050107
  Serious: Yes (Other)
  Sender: FDA-Public Use
  Company Number: A-US2004-06146

PATIENT
  Age: 78 Year
  Sex: Female

DRUGS (5)
  1. TRACLEER [Suspect]
     Indication: PULMONARY HYPERTENSION
     Dosage: SEE IMAGE
     Route: 048
     Dates: start: 20040318, end: 20040418
  2. TRACLEER [Suspect]
     Indication: PULMONARY HYPERTENSION
     Dosage: SEE IMAGE
     Route: 048
     Dates: start: 20040419, end: 20040501
  3. FELDENE [Concomitant]
  4. FLONASE [Concomitant]
  5. FOSAMAX [Concomitant]

REACTIONS (2)
  - INSOMNIA [None]
  - PEMPHIGOID [None]
